FAERS Safety Report 7045716-6 (Version None)
Quarter: 2010Q4

REPORT INFORMATION
  Report Type: 
  Country: None (occurrence: None)
  Receive Date: 20101014
  Receipt Date: 20101007
  Transmission Date: 20110411
  Serious: Yes (Life-Threatening)
  Sender: FDA-Public Use
  Company Number: JP-EISAI INC.-E2090-01281-SPO-JP

PATIENT
  Sex: Male

DRUGS (32)
  1. EXCEGRAN [Suspect]
     Indication: EPILEPSY
     Route: 048
     Dates: start: 20051222, end: 20051227
  2. EXCEGRAN [Suspect]
     Route: 048
     Dates: start: 20051228, end: 20060214
  3. EXCEGRAN [Suspect]
     Route: 048
     Dates: start: 20060215, end: 20060301
  4. EXCEGRAN [Suspect]
     Route: 048
     Dates: start: 20060302, end: 20080625
  5. EXCEGRAN [Suspect]
     Route: 048
     Dates: start: 20080626, end: 20100105
  6. EXCEGRAN [Suspect]
     Route: 048
     Dates: start: 20100106, end: 20100112
  7. EXCEGRAN [Suspect]
     Route: 048
     Dates: start: 20100113, end: 20100119
  8. EXCEGRAN [Suspect]
     Route: 048
     Dates: start: 20100120, end: 20100127
  9. ALFAROL [Suspect]
     Indication: OSTEOPOROSIS
     Route: 048
     Dates: start: 20060418
  10. VALPROIC ACID [Concomitant]
     Indication: EPILEPSY
  11. TEGRETOL [Concomitant]
     Indication: EPILEPSY
     Route: 048
     Dates: end: 20051026
  12. TEGRETOL [Concomitant]
     Route: 048
     Dates: start: 20051027, end: 20060301
  13. TEGRETOL [Concomitant]
     Route: 048
     Dates: start: 20060302, end: 20061203
  14. TEGRETOL [Concomitant]
     Route: 048
     Dates: start: 20061204
  15. LAMICTAL [Concomitant]
     Route: 048
     Dates: start: 20100106, end: 20100119
  16. LAMICTAL [Concomitant]
     Route: 048
     Dates: start: 20100120, end: 20100202
  17. LAMICTAL [Concomitant]
     Route: 048
     Dates: start: 20100203, end: 20100216
  18. LAMICTAL [Concomitant]
     Route: 048
     Dates: start: 20100217, end: 20100228
  19. LAMICTAL [Concomitant]
     Route: 048
     Dates: start: 20100301, end: 20100314
  20. LAMICTAL [Concomitant]
     Route: 048
     Dates: start: 20100315, end: 20100328
  21. LAMICTAL [Concomitant]
     Route: 048
     Dates: start: 20100329, end: 20100411
  22. LAMICTAL [Concomitant]
     Route: 048
     Dates: start: 20100412, end: 20100418
  23. LAMICTAL [Concomitant]
     Route: 048
     Dates: start: 20100419, end: 20100425
  24. LAMICTAL [Concomitant]
     Route: 048
     Dates: start: 20100426, end: 20100502
  25. LAMICTAL [Concomitant]
     Route: 048
     Dates: start: 20100503, end: 20100509
  26. LAMICTAL [Concomitant]
     Route: 048
     Dates: start: 20100510, end: 20100516
  27. LAMICTAL [Concomitant]
     Route: 048
     Dates: start: 20100517
  28. HEAVY MAGNESIUM OXIDE [Concomitant]
     Indication: CONSTIPATION
     Route: 048
     Dates: start: 20070216, end: 20080827
  29. HEAVY MAGNESIUM OXIDE [Concomitant]
     Route: 048
     Dates: start: 20080828, end: 20090819
  30. HEAVY MAGNESIUM OXIDE [Concomitant]
     Route: 048
     Dates: start: 20090820
  31. BIOFERMIN [Concomitant]
     Route: 048
     Dates: start: 20070216, end: 20080827
  32. BIOFERMIN [Concomitant]
     Route: 048
     Dates: start: 20080828

REACTIONS (3)
  - ILEUS PARALYTIC [None]
  - PYELONEPHRITIS ACUTE [None]
  - SEPSIS [None]
